FAERS Safety Report 14760206 (Version 1)
Quarter: 2018Q2

REPORT INFORMATION
  Report Type: Report from Study
  Country: US (occurrence: US)
  Receive Date: 20180413
  Receipt Date: 20180413
  Transmission Date: 20180711
  Serious: Yes (Other)
  Sender: FDA-Public Use
  Company Number: US-BEH-2018089573

PATIENT
  Age: 32 Year
  Sex: Female
  Weight: 47.57 kg

DRUGS (13)
  1. CYCLOBENZAPRINE. [Concomitant]
     Active Substance: CYCLOBENZAPRINE
  2. STERILE WATER [Concomitant]
     Active Substance: WATER
  3. TRAMADOL. [Concomitant]
     Active Substance: TRAMADOL
  4. MULTIVITAMINS [Concomitant]
     Active Substance: VITAMINS
  5. FIRAZYR [Concomitant]
     Active Substance: ICATIBANT ACETATE
  6. HAEGARDA [Suspect]
     Active Substance: HUMAN C1-ESTERASE INHIBITOR
     Indication: HEREDITARY ANGIOEDEMA
     Dosage: 3000 IU, EVERY 3-4 DAYS
     Route: 058
     Dates: start: 20180317, end: 20180317
  7. EPINEPHRINE. [Concomitant]
     Active Substance: EPINEPHRINE
  8. COENZYME Q10 [Concomitant]
     Active Substance: UBIDECARENONE
  9. L-CARNITINE                        /00878601/ [Concomitant]
     Active Substance: LEVOCARNITINE
  10. BIOTIN [Concomitant]
     Active Substance: BIOTIN
  11. HAEGARDA [Suspect]
     Active Substance: HUMAN C1-ESTERASE INHIBITOR
     Indication: PROPHYLAXIS
  12. SODIUM CHLORIDE. [Concomitant]
     Active Substance: SODIUM CHLORIDE
  13. SUVOREXANT. [Concomitant]
     Active Substance: SUVOREXANT

REACTIONS (1)
  - Hereditary angioedema [Unknown]

NARRATIVE: CASE EVENT DATE: 20180317
